FAERS Safety Report 24691583 (Version 1)
Quarter: 2024Q4

REPORT INFORMATION
  Report Type: Spontaneous
  Country: HR (occurrence: HR)
  Receive Date: 20241203
  Receipt Date: 20241203
  Transmission Date: 20250115
  Serious: Yes (Other)
  Sender: PFIZER
  Company Number: HR-PFIZER INC-202400313206

PATIENT
  Age: 73 Year
  Sex: Male

DRUGS (5)
  1. VINCRISTINE SULFATE [Suspect]
     Active Substance: VINCRISTINE SULFATE
     Dosage: 3 CYCLES
     Dates: start: 2024
  2. CYCLOPHOSPHAMIDE [Suspect]
     Active Substance: CYCLOPHOSPHAMIDE
     Dosage: 3 CYCLES
     Dates: start: 2024
  3. DOXORUBICIN HYDROCHLORIDE [Suspect]
     Active Substance: DOXORUBICIN HYDROCHLORIDE
     Dosage: 3 CYCLES
     Dates: start: 2024
  4. ETOPOSIDE [Suspect]
     Active Substance: ETOPOSIDE
     Dosage: 3 CYCLES
     Dates: start: 2024
  5. PREDNISONE [Suspect]
     Active Substance: PREDNISONE
     Dosage: 3 CYCLES
     Dates: start: 2024

REACTIONS (2)
  - Pneumonia [Unknown]
  - COVID-19 [Unknown]
